FAERS Safety Report 4380259-X (Version None)
Quarter: 2004Q2

REPORT INFORMATION
  Report Type: 
  Country: None (occurrence: None)
  Receive Date: 20040616
  Receipt Date: 20040616
  Transmission Date: 20050107
  Serious: Yes (Hospitalization)
  Sender: FDA-Public Use
  Company Number: None

PATIENT
  Age: 46 Year
  Sex: Female
  Weight: 86.1834 kg

DRUGS (3)
  1. AVINZA [Suspect]
     Indication: ABDOMINAL PAIN
     Dosage: 30 MG ONE DOSE QD PO
     Route: 048
     Dates: start: 20040420, end: 20040615
  2. NEURONTIN [Concomitant]
  3. PAMELOR [Concomitant]

REACTIONS (1)
  - INTESTINAL OPERATION [None]
